FAERS Safety Report 6570632-3 (Version None)
Quarter: 2010Q1

REPORT INFORMATION
  Report Type: 
  Country: None (occurrence: None)
  Receive Date: 20100204
  Receipt Date: 20100128
  Transmission Date: 20100710
  Serious: Yes (Other)
  Sender: FDA-Public Use
  Company Number: GB-PFIZER INC-2010012631

PATIENT
  Sex: Male

DRUGS (4)
  1. CHAMPIX [Suspect]
     Indication: SMOKING CESSATION THERAPY
     Dosage: UNK
     Route: 048
  2. ASACOL [Concomitant]
     Dosage: 400 MG, 6 TIMES DAILY
  3. PREDNISOLONE [Concomitant]
     Dosage: 5 MG, 1X/DAY
  4. NICORETTE [Concomitant]
     Route: 062

REACTIONS (2)
  - COLITIS [None]
  - GLOSSITIS [None]
